FAERS Safety Report 5895402-0 (Version None)
Quarter: 2008Q3

REPORT INFORMATION
  Report Type: 
  Country: None (occurrence: None)
  Receive Date: 20080923
  Receipt Date: 20080923
  Transmission Date: 20090109
  Serious: Yes (Disabling)
  Sender: FDA-Public Use
  Company Number: None

PATIENT
  Age: 65 Year
  Sex: Female
  Weight: 83.9154 kg

DRUGS (2)
  1. CARVEDILOL [Suspect]
     Indication: BLOOD PRESSURE
     Dates: start: 20080730, end: 20080910
  2. CARVEDILOL [Suspect]

REACTIONS (4)
  - ABASIA [None]
  - DRUG HYPERSENSITIVITY [None]
  - DYSPNOEA EXERTIONAL [None]
  - NASAL CONGESTION [None]
